FAERS Safety Report 19513027 (Version 4)
Quarter: 2021Q4

REPORT INFORMATION
  Report Type: Spontaneous
  Country: US (occurrence: US)
  Receive Date: 20210709
  Receipt Date: 20211012
  Transmission Date: 20220303
  Serious: Yes (Other)
  Sender: FDA-Public Use
  Company Number: NVSC2021US141119

PATIENT
  Sex: Female

DRUGS (3)
  1. COSENTYX [Suspect]
     Active Substance: SECUKINUMAB
     Indication: Psoriasis
     Dosage: UNK,
     Route: 065
  2. HUMIRA [Suspect]
     Active Substance: ADALIMUMAB
     Indication: Psoriasis
     Dosage: 40 MG, 1 IN 2-2 (1 IN 1 M)
     Route: 058
     Dates: start: 2017
  3. HUMIRA [Suspect]
     Active Substance: ADALIMUMAB
     Dosage: 40 UNK
     Route: 058

REACTIONS (11)
  - Mental impairment [Unknown]
  - Psoriasis [Not Recovered/Not Resolved]
  - Illness [Unknown]
  - Stress [Unknown]
  - Rash papular [Unknown]
  - Injection site pain [Unknown]
  - Injection site urticaria [Unknown]
  - Nausea [Unknown]
  - Device issue [Recovered/Resolved]
  - Therapeutic product effect decreased [Unknown]
  - Drug ineffective [Unknown]
